FAERS Safety Report 5482111-5 (Version None)
Quarter: 2007Q4

REPORT INFORMATION
  Report Type: 
  Country: None (occurrence: None)
  Receive Date: 20071011
  Receipt Date: 20071003
  Transmission Date: 20080405
  Serious: Yes (Other)
  Sender: FDA-Public Use
  Company Number: PHBS2007JP16110

PATIENT
  Age: 46 Year
  Sex: Female

DRUGS (1)
  1. CICLOSPORIN [Suspect]
     Indication: ALLOGENIC BONE MARROW TRANSPLANTATION THERAPY
     Dosage: UNK, UNK
     Route: 065
     Dates: start: 20050101

REACTIONS (6)
  - BLOOD LACTATE DEHYDROGENASE INCREASED [None]
  - FOCAL GLOMERULOSCLEROSIS [None]
  - HAPTOGLOBIN DECREASED [None]
  - PROTEINURIA [None]
  - RED BLOOD CELL ABNORMALITY [None]
  - THROMBOTIC MICROANGIOPATHY [None]
